FAERS Safety Report 6368286-4 (Version None)
Quarter: 2009Q3

REPORT INFORMATION
  Report Type: 
  Country: None (occurrence: None)
  Receive Date: 20090922
  Receipt Date: 20090914
  Transmission Date: 20100115
  Serious: Yes (Hospitalization)
  Sender: FDA-Public Use
  Company Number: DE-JNJFOC-20090903852

PATIENT
  Sex: Male
  Weight: 81 kg

DRUGS (1)
  1. REMICADE [Suspect]
     Indication: COLITIS ULCERATIVE
     Route: 042
     Dates: start: 20080108, end: 20080415

REACTIONS (2)
  - ASCITES [None]
  - GASTROINTESTINAL SURGERY [None]
